FAERS Safety Report 6493491-6 (Version None)
Quarter: 2009Q4

REPORT INFORMATION
  Report Type: 
  Country: None (occurrence: None)
  Receive Date: 20091214
  Receipt Date: 20091201
  Transmission Date: 20100525
  Serious: Yes (Hospitalization)
  Sender: FDA-Public Use
  Company Number: US-ELI_LILLY_AND_COMPANY-US200910002307

PATIENT
  Sex: Male

DRUGS (4)
  1. FORTEO [Suspect]
     Indication: OSTEOPOROSIS
     Dosage: UNK, UNK
     Dates: end: 20090101
  2. FORTEO [Suspect]
     Dates: start: 20090101
  3. PREDNISONE TAB [Concomitant]
     Dosage: 10 MG, UNK
  4. TERAZOSIN HCL [Concomitant]
     Dosage: 8 MG, UNK

REACTIONS (2)
  - ASTHENIA [None]
  - DEHYDRATION [None]
